FAERS Safety Report 6227370-6 (Version None)
Quarter: 2009Q2

REPORT INFORMATION
  Report Type: 
  Country: None (occurrence: None)
  Receive Date: 20090610
  Receipt Date: 20090526
  Transmission Date: 20091009
  Serious: Yes (Life-Threatening, Hospitalization)
  Sender: FDA-Public Use
  Company Number: 2009001293

PATIENT
  Age: 53 Year
  Sex: Male
  Weight: 72 kg

DRUGS (9)
  1. ERLOTINIB (ERLOTINIB) (TABLET) (ERLOTINIB) [Suspect]
     Indication: NON-SMALL CELL LUNG CANCER
     Dosage: (150 MG, QD), ORAL
     Route: 048
     Dates: start: 20090122, end: 20090417
  2. SUNITINIB/ PLACEBO [Suspect]
     Indication: NON-SMALL CELL LUNG CANCER
     Dosage: (37.5 MG)
     Dates: start: 20090122, end: 20090417
  3. KETOPROFEN [Suspect]
     Dosage: (100 MG, BID), ORAL
     Route: 048
  4. MORPHINE SULFATE INJ [Concomitant]
  5. OMEPRAZOLE [Concomitant]
  6. FORMOTEROL (FORMOTEROL) [Concomitant]
  7. AMITRIPTYLINE HYDROCHLORIDE [Concomitant]
  8. BECLOMETHASONE DIPROPIONATE [Concomitant]
  9. MAGNESIUM (MAGNESIUM) [Concomitant]

REACTIONS (3)
  - EPISTAXIS [None]
  - HAEMOGLOBIN DECREASED [None]
  - THROMBOCYTOPENIA [None]
